FAERS Safety Report 13920658 (Version 1)
Quarter: 2017Q3

REPORT INFORMATION
  Report Type: Spontaneous
  Country: US (occurrence: None)
  Receive Date: 20170829
  Receipt Date: 20170829
  Transmission Date: 20171127
  Serious: No
  Sender: FDA-Public Use
  Company Number: None

PATIENT
  Age: 72 Year
  Sex: Male

DRUGS (1)
  1. REGADENOSON [Suspect]
     Active Substance: REGADENOSON
     Indication: CARDIAC STRESS TEST
     Dates: start: 20170519, end: 20170519

REACTIONS (3)
  - Dizziness [None]
  - Blood pressure systolic decreased [None]
  - Hypotension [None]

NARRATIVE: CASE EVENT DATE: 20170519
